FAERS Safety Report 5582927-0 (Version None)
Quarter: 2008Q1

REPORT INFORMATION
  Report Type: 
  Country: None (occurrence: None)
  Receive Date: 20080107
  Receipt Date: 20071227
  Transmission Date: 20080703
  Serious: Yes (Hospitalization)
  Sender: FDA-Public Use
  Company Number: FR-ROCHE-538892

PATIENT
  Age: 75 Year
  Sex: Female

DRUGS (13)
  1. RIVOTRIL [Suspect]
     Indication: PAIN
     Route: 048
     Dates: start: 20070401
  2. COLCHICINE [Suspect]
     Indication: GOUTY ARTHRITIS
     Route: 048
     Dates: start: 20070329, end: 20070331
  3. COLCHICINE [Suspect]
     Route: 048
     Dates: start: 20070401, end: 20070410
  4. COLCHICINE [Suspect]
     Route: 048
     Dates: start: 20070411, end: 20070413
  5. CORTANCYL [Concomitant]
     Indication: PAIN
     Route: 048
     Dates: start: 20070403, end: 20070410
  6. IMODIUM [Concomitant]
     Indication: DIARRHOEA
     Route: 048
     Dates: start: 20070329
  7. MOTILIUM [Concomitant]
     Indication: NAUSEA
     Route: 048
     Dates: start: 20070406
  8. DI ANTALVIC [Concomitant]
     Indication: PAIN
     Route: 048
     Dates: start: 20070410
  9. BURINEX [Concomitant]
     Dosage: LONG TERM TREATMENT
  10. PERINDOPRIL ERBUMINE [Concomitant]
     Dosage: LONG TERM TREATMENT
  11. EUPRESSYL [Concomitant]
     Dosage: LONG TERM TREATMENT
  12. LOXEN [Concomitant]
     Dosage: LONG TERM TREATMENT
  13. SINTROM [Concomitant]
     Dosage: LONG TERM TREATMENT

REACTIONS (4)
  - DIARRHOEA [None]
  - LYMPHOPENIA [None]
  - NEUROMYOPATHY [None]
  - THROMBOCYTOPENIA [None]
